FAERS Safety Report 8592693-2 (Version None)
Quarter: 2012Q3

REPORT INFORMATION
  Report Type: 
  Country: None (occurrence: None)
  Receive Date: 20120814
  Receipt Date: 20120607
  Transmission Date: 20120928
  Serious: No
  Sender: FDA-Public Use
  Company Number: US-COVIDIEN/TYCO HEALTHCARE/MALLINCKRODT-T201202522

PATIENT
  Sex: Male

DRUGS (2)
  1. DURAGESIC-100 [Concomitant]
     Indication: BREAKTHROUGH PAIN
     Dosage: 1 PATCH PRN
  2. FENTANYL [Suspect]
     Indication: PAIN
     Dosage: 100 MCG/HR Q 72 HRS
     Route: 062
     Dates: start: 20120601

REACTIONS (2)
  - PAIN [None]
  - DRUG EFFECT DECREASED [None]
